FAERS Safety Report 4527653-1 (Version None)
Quarter: 2004Q4

REPORT INFORMATION
  Report Type: 
  Country: None (occurrence: None)
  Receive Date: 20041215
  Receipt Date: 20041201
  Transmission Date: 20050328
  Serious: Yes (Other)
  Sender: FDA-Public Use
  Company Number: DE-AMGEN-US103103

PATIENT
  Sex: Female

DRUGS (1)
  1. ENBREL [Suspect]
     Indication: SPONDYLOARTHROPATHY

REACTIONS (1)
  - PERITONITIS [None]
